FAERS Safety Report 9319152 (Version 1)
Quarter: 2013Q2

REPORT INFORMATION
  Report Type: Spontaneous
  Country: US (occurrence: US)
  Receive Date: 20130530
  Receipt Date: 20130530
  Transmission Date: 20140414
  Serious: No
  Sender: FDA-Public Use
  Company Number: US-NOVEN-13US006075

PATIENT
  Sex: Female

DRUGS (2)
  1. DAYTRANA [Suspect]
     Indication: MULTIPLE SCLEROSIS
     Dosage: 30 MG, UNK
     Route: 062
     Dates: start: 2012
  2. DAYTRANA [Suspect]
     Indication: FATIGUE

REACTIONS (2)
  - Off label use [Not Recovered/Not Resolved]
  - No adverse event [None]
